FAERS Safety Report 5345663-1 (Version None)
Quarter: 2007Q2

REPORT INFORMATION
  Report Type: 
  Country: None (occurrence: None)
  Receive Date: 20070601
  Receipt Date: 20070518
  Transmission Date: 20071010
  Serious: Yes (Hospitalization)
  Sender: FDA-Public Use
  Company Number: PAR_01576_2007

PATIENT
  Sex: Male

DRUGS (4)
  1. CAPOTEN [Suspect]
     Indication: HYPERTENSION
     Dosage: 150 MG QD ORAL
     Route: 048
  2. CAPOTEN [Suspect]
     Indication: HYPERTENSION
     Dosage: ORAL
     Route: 048
  3. LASIX /00032601/ (UNKNOWN UNTIL CONTINUING) [Concomitant]
  4. OLCADIL (UNKNOWN UNTIL CONTINUING) [Concomitant]

REACTIONS (5)
  - DIZZINESS [None]
  - DYSGEUSIA [None]
  - HYPERTENSION [None]
  - MALAISE [None]
  - PHARMACEUTICAL PRODUCT COMPLAINT [None]
